FAERS Safety Report 12700651 (Version 1)
Quarter: 2016Q3

REPORT INFORMATION
  Report Type: Spontaneous
  Country: US (occurrence: US)
  Receive Date: 20160830
  Receipt Date: 20160830
  Transmission Date: 20161109
  Serious: No
  Sender: FDA-Public Use
  Company Number: US-SA-2015SA209231

PATIENT
  Age: 68 Year
  Sex: Male

DRUGS (3)
  1. ELIQUIS [Interacting]
     Active Substance: APIXABAN
     Route: 065
  2. SOTALOL. [Concomitant]
     Active Substance: SOTALOL
  3. MULTAQ [Suspect]
     Active Substance: DRONEDARONE
     Indication: SURGERY
     Route: 065
     Dates: start: 20151126

REACTIONS (6)
  - Drug interaction [Unknown]
  - Paraesthesia [Not Recovered/Not Resolved]
  - Diarrhoea [Not Recovered/Not Resolved]
  - Visual acuity reduced [Not Recovered/Not Resolved]
  - Haematuria [Not Recovered/Not Resolved]
  - Muscle spasms [Not Recovered/Not Resolved]

NARRATIVE: CASE EVENT DATE: 20151202
